FAERS Safety Report 17547968 (Version 1)
Quarter: 2020Q1

REPORT INFORMATION
  Report Type: Spontaneous
  Country: US (occurrence: US)
  Receive Date: 20200317
  Receipt Date: 20200317
  Transmission Date: 20200409
  Serious: Yes (Death, Other)
  Sender: FDA-Public Use
  Company Number: US-SHILPA MEDICARE LIMITED-SML-US-2020-00120

PATIENT
  Age: 79 Year
  Sex: Male

DRUGS (3)
  1. AZACITIDINE, UNKNOWN [Suspect]
     Active Substance: AZACITIDINE
     Indication: ACUTE MYELOID LEUKAEMIA REFRACTORY
     Route: 065
  2. VENETOCLAX. [Suspect]
     Active Substance: VENETOCLAX
     Indication: ACUTE MYELOID LEUKAEMIA REFRACTORY
     Dosage: DOSING OF VEN WAS AT PHYSICIAN DISCRETION WITH A STARTING DOSE RANGING FROM 100 TO 800 MG (MEDIAN 20
     Route: 065
  3. VENETOCLAX. [Suspect]
     Active Substance: VENETOCLAX
     Dosage: MAINTENANCE DOSE
     Route: 065

REACTIONS (3)
  - Staphylococcal infection [Fatal]
  - Thrombocytopenia [Unknown]
  - Neutropenia [Unknown]
